FAERS Safety Report 5884347 (Version 8)
Quarter: 2020Q3

REPORT INFORMATION
  Report Type: Report from Study
  Country: US (occurrence: US)
  Receive Date: 20050923
  Receipt Date: 20080508
  Transmission Date: 20201104
  Serious: Yes (Other)
  Sender: FDA-Public Use
  Company Number: US-JNJFOC-20050904810

PATIENT
  Age: 34 Year
  Sex: Male
  Weight: 60 kg

DRUGS (22)
  1. CISAPRIDE [Suspect]
     Active Substance: CISAPRIDE
     Indication: GASTROOESOPHAGEAL REFLUX DISEASE
     Route: 050
  2. LANSOPRAZOLE. [Concomitant]
     Active Substance: LANSOPRAZOLE
     Indication: GASTROOESOPHAGEAL REFLUX DISEASE
     Route: 050
  3. VALIUM [Concomitant]
     Active Substance: DIAZEPAM
     Route: 050
  4. DILANTIN [Concomitant]
     Active Substance: PHENYTOIN
     Indication: SEIZURE
  5. PERI?COLACE [Concomitant]
     Active Substance: CASANTHRANOL\DOCUSATE SODIUM
     Dosage: PM
     Route: 050
  6. BISACODYL. [Concomitant]
     Active Substance: BISACODYL
     Indication: CONSTIPATION
  7. LANSOPRAZOLE. [Concomitant]
     Active Substance: LANSOPRAZOLE
     Indication: IMPAIRED GASTRIC EMPTYING
     Route: 050
  8. VITAMIN D2 [Concomitant]
     Active Substance: ERGOCALCIFEROL
     Route: 050
  9. ALLEGRA [Concomitant]
     Active Substance: FEXOFENADINE HYDROCHLORIDE
     Indication: HYPERSENSITIVITY
  10. CHLORPHENIRAMINE. [Concomitant]
     Active Substance: CHLORPHENIRAMINE
     Indication: HYPERSENSITIVITY
     Route: 050
  11. NAPHCON [Concomitant]
     Active Substance: NAPHAZOLINE HYDROCHLORIDE
     Indication: HYPERSENSITIVITY
     Dosage: 2 DROPS EACH EYE
  12. MILK OF MAGNESIA [Concomitant]
     Active Substance: MAGNESIUM HYDROXIDE
     Indication: CONSTIPATION
     Route: 050
  13. CALCIUM [Concomitant]
     Active Substance: CALCIUM
     Indication: OSTEOPOROSIS
     Route: 050
  14. SULFACET [Concomitant]
     Active Substance: SULFACETAMIDE
     Indication: ACNE
     Route: 061
  15. TYLENOL [Concomitant]
     Active Substance: ACETAMINOPHEN
     Indication: PYREXIA
  16. CISAPRIDE [Suspect]
     Active Substance: CISAPRIDE
     Dosage: TEMPORARILY STOPPED
     Route: 050
  17. CISAPRIDE [Suspect]
     Active Substance: CISAPRIDE
     Indication: GASTROOESOPHAGEAL REFLUX DISEASE
     Dosage: PERMANENTLY STOPPED
     Route: 050
  18. PERI?COLACE [Concomitant]
     Active Substance: CASANTHRANOL\DOCUSATE SODIUM
     Indication: CONSTIPATION
     Dosage: AM
     Route: 050
  19. FLEET NOS [Concomitant]
     Active Substance: BISACODYL OR GLYCERIN OR MINERAL OIL OR SODIUM PHOSPHATE, DIBASIC\SODIUM PHOSPHATE, MONOBASIC
     Indication: CONSTIPATION
     Route: 054
  20. TYLENOL [Concomitant]
     Active Substance: ACETAMINOPHEN
     Indication: DISCOMFORT
  21. FOSAMAX [Concomitant]
     Active Substance: ALENDRONATE SODIUM
     Indication: OSTEOPOROSIS
  22. ASCORBIC ACID\ERGOCALCIFEROL\FOLIC ACID\PANTHENOL\RETINOL\RIBOFLAVIN\THIAMINE HYDROCHLORIDE [Concomitant]
     Active Substance: ASCORBIC ACID\ERGOCALCIFEROL\FOLIC ACID\PANTHENOL\RETINOL\RIBOFLAVIN\THIAMINE HYDROCHLORIDE
     Indication: MEDICAL DIET
     Route: 050

REACTIONS (1)
  - Electrocardiogram QT prolonged [Not Recovered/Not Resolved]

NARRATIVE: CASE EVENT DATE: 20050906
